FAERS Safety Report 23759421 (Version 3)
Quarter: 2024Q2

REPORT INFORMATION
  Report Type: Report from Study
  Country: US (occurrence: US)
  Receive Date: 20240418
  Receipt Date: 20240523
  Transmission Date: 20240716
  Serious: Yes (Hospitalization, Other)
  Sender: FDA-Public Use
  Company Number: US-ARGENX-2024-ARGX-US002514

PATIENT

DRUGS (1)
  1. VYVGART [Suspect]
     Active Substance: EFGARTIGIMOD ALFA-FCAB
     Indication: Product used for unknown indication
     Dosage: UNK
     Route: 042

REACTIONS (7)
  - Hospitalisation [Unknown]
  - Ankle fracture [Unknown]
  - Osteomyelitis [Unknown]
  - Colectomy [Unknown]
  - Urinary tract infection [Unknown]
  - Ankle fracture [Unknown]
  - COVID-19 [Unknown]

NARRATIVE: CASE EVENT DATE: 20230701
